FAERS Safety Report 7058127-4 (Version None)
Quarter: 2010Q4

REPORT INFORMATION
  Report Type: 
  Country: None (occurrence: None)
  Receive Date: 20101022
  Receipt Date: 20101013
  Transmission Date: 20110411
  Serious: Yes (Hospitalization)
  Sender: FDA-Public Use
  Company Number: JP-MERCK-1009USA04652

PATIENT
  Age: 64 Year
  Sex: Male

DRUGS (5)
  1. PEPCID RPD [Suspect]
     Route: 048
     Dates: start: 20100801
  2. FINIBAX [Suspect]
     Route: 041
  3. LOXONIN [Suspect]
     Route: 048
  4. CANDESARTAN CILEXETIL [Suspect]
     Route: 048
  5. VANCOMYCIN HYDROCHLORIDE [Suspect]
     Route: 041

REACTIONS (1)
  - INTERSTITIAL LUNG DISEASE [None]
